FAERS Safety Report 7789585 (Version 3)
Quarter: 2013Q1

REPORT INFORMATION
  Report Type: Report from Study
  Country: US (occurrence: US)
  Receive Date: 20110130
  Receipt Date: 20130128
  Transmission Date: 20140127
  Serious: Yes (Hospitalization)
  Sender: FDA-Public Use
  Company Number: US-ABBOTT-10P-163-0688887-00

PATIENT
  Sex: Male
  Weight: 85.81 kg

DRUGS (11)
  1. HUMIRA 40 MG/ 0.8 ML PRE-FILLED SYRINGE [Suspect]
     Indication: RHEUMATOID ARTHRITIS
     Route: 058
     Dates: start: 2006
  2. METHOTREXATE [Suspect]
     Indication: RHEUMATOID ARTHRITIS
     Dates: start: 2008, end: 201012
  3. DIOVAN HCT [Concomitant]
     Indication: HYPERTENSION
     Dosage: 320/12.5MG EVERYDAY
  4. TEKTURNA [Concomitant]
     Indication: BLOOD PRESSURE
  5. CADUET [Concomitant]
     Indication: HYPERTENSION
  6. CADUET [Concomitant]
     Indication: BLOOD CHOLESTEROL
  7. GABAPENTIN [Concomitant]
     Indication: BACK PAIN
  8. ADVAIR [Concomitant]
     Indication: PRODUCT USED FOR UNKNOWN INDICATION
  9. AVODART [Concomitant]
     Indication: URINARY INCONTINENCE
  10. TRICOR [Concomitant]
     Indication: BLOOD TRIGLYCERIDES INCREASED
  11. UNKNOWN BLADDER MEDICATION [Concomitant]
     Indication: BENIGN PROSTATIC HYPERPLASIA

REACTIONS (6)
  - Lung infection [Recovered/Resolved]
  - Weight decreased [Unknown]
  - Dyspnoea [Recovered/Resolved]
  - Rash papular [Not Recovered/Not Resolved]
  - Rash pruritic [Not Recovered/Not Resolved]
  - Urticaria [Not Recovered/Not Resolved]
